FAERS Safety Report 5446936-4 (Version None)
Quarter: 2007Q3

REPORT INFORMATION
  Report Type: 
  Country: None (occurrence: None)
  Receive Date: 20070907
  Receipt Date: 20070829
  Transmission Date: 20080115
  Serious: Yes (Other)
  Sender: FDA-Public Use
  Company Number: DE-GENENTECH-246875

PATIENT
  Age: 62 Year
  Sex: Female

DRUGS (1)
  1. ACTIVASE [Suspect]
     Indication: RETINAL VEIN OCCLUSION
     Dosage: 200 MCG (1 ML)
     Route: 042

REACTIONS (3)
  - DRUG INEFFECTIVE [None]
  - MACULOPATHY [None]
  - RETINAL HAEMORRHAGE [None]
